FAERS Safety Report 7684391-4 (Version None)
Quarter: 2011Q3

REPORT INFORMATION
  Report Type: 
  Country: None (occurrence: None)
  Receive Date: 20110816
  Receipt Date: 20110809
  Transmission Date: 20111222
  Serious: Yes (Hospitalization)
  Sender: FDA-Public Use
  Company Number: IT-BRISTOL-MYERS SQUIBB COMPANY-15964315

PATIENT
  Age: 81 Year
  Sex: Female

DRUGS (3)
  1. IRBESARTAN [Suspect]
     Indication: HYPERTENSION
     Dosage: 1 DF = 1 UNITS INTERUPPTED ON 15FEB11
     Route: 048
     Dates: start: 20010215
  2. CARVEDILOL [Suspect]
     Indication: HYPERTENSION
     Dosage: INTERUPPTED ON 15FEB11 RESTARTED ON 22FEB11 AT A DOSE OF 6.25 (UNITS NOS)
     Route: 048
     Dates: start: 20060215
  3. LASIX [Suspect]
     Indication: HYPERTENSION
     Dosage: TABS.INTERUPPTED ON 15FEB11
     Route: 048
     Dates: start: 20010215

REACTIONS (3)
  - ORTHOSTATIC HYPOTENSION [None]
  - HEAD INJURY [None]
  - FALL [None]
